FAERS Safety Report 9326736 (Version 7)
Quarter: 2017Q2

REPORT INFORMATION
  Report Type: Report from Study
  Country: CA (occurrence: CA)
  Receive Date: 20130604
  Receipt Date: 20170609
  Transmission Date: 20170830
  Serious: Yes (Hospitalization, Other)
  Sender: FDA-Public Use
  Company Number: CA-ROCHE-1230647

PATIENT
  Age: 61 Year
  Sex: Male
  Weight: 115 kg

DRUGS (13)
  1. PREDNISONE. [Suspect]
     Active Substance: PREDNISONE
     Indication: PRODUCT USED FOR UNKNOWN INDICATION
     Route: 065
     Dates: end: 2014
  2. EZETIMIBE. [Concomitant]
     Active Substance: EZETIMIBE
  3. RITUXAN [Suspect]
     Active Substance: RITUXIMAB
     Route: 042
     Dates: start: 2009
  4. FOLIC ACID. [Concomitant]
     Active Substance: FOLIC ACID
  5. ACETYLSALICYLIC ACID [Concomitant]
     Active Substance: ASPIRIN
  6. PRAVASTATIN. [Concomitant]
     Active Substance: PRAVASTATIN
  7. PROPRANOLOL [Concomitant]
     Active Substance: PROPRANOLOL HYDROCHLORIDE
     Route: 065
     Dates: start: 2011
  8. RITUXAN [Suspect]
     Active Substance: RITUXIMAB
     Route: 042
     Dates: start: 20140306
  9. VERAPAMIL [Concomitant]
     Active Substance: VERAPAMIL HYDROCHLORIDE
  10. RITUXAN [Suspect]
     Active Substance: RITUXIMAB
     Indication: EVANS SYNDROME
     Route: 042
     Dates: start: 2007, end: 2007
  11. RITUXAN [Suspect]
     Active Substance: RITUXIMAB
     Route: 042
     Dates: start: 2011
  12. WARFARIN [Concomitant]
     Active Substance: WARFARIN
     Dosage: PATIENT IS OFF FOR NOW UNTIL PLATELETS INCREASE
     Route: 065
  13. HYDROCHLOROTHIAZIDE. [Concomitant]
     Active Substance: HYDROCHLOROTHIAZIDE

REACTIONS (15)
  - Headache [Not Recovered/Not Resolved]
  - Arrhythmia [Unknown]
  - Tachycardia [Not Recovered/Not Resolved]
  - Immune thrombocytopenic purpura [Not Recovered/Not Resolved]
  - Haemoptysis [Recovering/Resolving]
  - Swelling [Not Recovered/Not Resolved]
  - Off label use [Unknown]
  - Viral upper respiratory tract infection [Recovering/Resolving]
  - Insomnia [Not Recovered/Not Resolved]
  - Neutropenia [Unknown]
  - Platelet count decreased [Not Recovered/Not Resolved]
  - Osteonecrosis [Unknown]
  - Syncope [Not Recovered/Not Resolved]
  - Skin irritation [Not Recovered/Not Resolved]
  - Hypertension [Recovering/Resolving]

NARRATIVE: CASE EVENT DATE: 2009
